FAERS Safety Report 4594546-3 (Version None)
Quarter: 2005Q1

REPORT INFORMATION
  Report Type: 
  Country: None (occurrence: None)
  Receive Date: 20050301
  Receipt Date: 20040510
  Transmission Date: 20050727
  Serious: No
  Sender: FDA-Public Use
  Company Number: US-GLAXOSMITHKLINE-A0510232A

PATIENT
  Age: 61 Year
  Sex: Female

DRUGS (4)
  1. VALTREX [Suspect]
     Dosage: 500MG VARIABLE DOSE
     Route: 048
     Dates: start: 20040301, end: 20040301
  2. PREMARIN [Concomitant]
  3. LEVOTHROID [Concomitant]
  4. PREVACID [Concomitant]

REACTIONS (1)
  - DIARRHOEA [None]
